FAERS Safety Report 14332085 (Version 1)
Quarter: 2017Q4

REPORT INFORMATION
  Report Type: Spontaneous
  Country: GB (occurrence: GB)
  Receive Date: 20171227
  Receipt Date: 20171227
  Transmission Date: 20180321
  Serious: Yes (Hospitalization)
  Sender: FDA-Public Use
  Company Number: None

PATIENT
  Age: 73 Year
  Sex: Female
  Weight: 63 kg

DRUGS (7)
  1. AVASTIN [Suspect]
     Active Substance: BEVACIZUMAB
     Indication: NEOPLASM
  2. NOVARAPID INSULIN [Concomitant]
  3. EZETIMIBE. [Concomitant]
     Active Substance: EZETIMIBE
  4. AMLODOPIN [Concomitant]
  5. LEVOTHYROXINE. [Concomitant]
     Active Substance: LEVOTHYROXINE
  6. LEVEMIR [Concomitant]
     Active Substance: INSULIN DETEMIR
  7. OLMESARTON [Concomitant]

REACTIONS (5)
  - Gastrointestinal pain [None]
  - Life expectancy shortened [None]
  - Renal disorder [None]
  - Constipation [None]
  - Sepsis [None]

NARRATIVE: CASE EVENT DATE: 20171016
